FAERS Safety Report 8464940-9 (Version None)
Quarter: 2012Q2

REPORT INFORMATION
  Report Type: 
  Country: None (occurrence: None)
  Receive Date: 20120626
  Receipt Date: 20120420
  Transmission Date: 20120825
  Serious: Yes (Death, Hospitalization, Other)
  Sender: FDA-Public Use
  Company Number: US-AMGEN-USASP2011013032

PATIENT
  Age: 46 Year
  Sex: Female
  Weight: 111 kg

DRUGS (3)
  1. CALCITRIOL [Concomitant]
     Route: 048
  2. EPOGEN [Suspect]
     Indication: DIALYSIS
     Dosage: 5600 IU, 3 TIMES/WK
     Route: 042
     Dates: start: 20101201, end: 20110303
  3. RENVELA [Concomitant]
     Route: 048

REACTIONS (9)
  - REFUSAL OF TREATMENT BY PATIENT [None]
  - HOSPITALISATION [None]
  - PAIN [None]
  - STAPHYLOCOCCAL INFECTION [None]
  - SEPSIS [None]
  - CELLULITIS [None]
  - GRAFT INFECTION [None]
  - HYPOTENSION [None]
  - WOUND [None]
